FAERS Safety Report 16980563 (Version 1)
Quarter: 2019Q4

REPORT INFORMATION
  Report Type: Spontaneous
  Country: US (occurrence: US)
  Receive Date: 20191031
  Receipt Date: 20191031
  Transmission Date: 20200122
  Serious: No
  Sender: FDA-Public Use
  Company Number: US-009507513-1910USA016508

PATIENT
  Sex: Female

DRUGS (9)
  1. FOLLISTIM AQ [Suspect]
     Active Substance: FOLLITROPIN
     Indication: INFERTILITY FEMALE
     Dosage: 600 IU INTERNATIONAL UNIT(S) AS DIRECTED
     Route: 058
     Dates: start: 20180110
  2. OVIDREL [Concomitant]
     Active Substance: CHORIOGONADOTROPIN ALFA
  3. CETROTIDE [Suspect]
     Active Substance: CETRORELIX ACETATE
  4. LEUPROLIDE [Concomitant]
     Active Substance: LEUPROLIDE
  5. PUREGON PEN [DEVICE] [Suspect]
     Active Substance: DEVICE
  6. CRINONE [Concomitant]
     Active Substance: PROGESTERONE
  7. ESTRADIOL. [Concomitant]
     Active Substance: ESTRADIOL
  8. PROGESTERONE. [Concomitant]
     Active Substance: PROGESTERONE
  9. MENOPUR [Concomitant]
     Active Substance: FOLLITROPIN\LUTEINIZING HORMONE

REACTIONS (1)
  - Drug hypersensitivity [Unknown]

NARRATIVE: CASE EVENT DATE: 2019
